FAERS Safety Report 7335917-1 (Version None)
Quarter: 2011Q1

REPORT INFORMATION
  Report Type: 
  Country: None (occurrence: None)
  Receive Date: 20110307
  Receipt Date: 20110223
  Transmission Date: 20110831
  Serious: Yes (Other)
  Sender: FDA-Public Use
  Company Number: JP-BAYER-2011-018112

PATIENT
  Age: 40 Year
  Sex: Female

DRUGS (1)
  1. ASPIRIN [Suspect]
     Indication: SUICIDE ATTEMPT
     Dosage: DAILY DOSE 34 G
     Route: 048

REACTIONS (1)
  - TOXICITY TO VARIOUS AGENTS [None]
